FAERS Safety Report 5152186-1 (Version None)
Quarter: 2006Q4

REPORT INFORMATION
  Report Type: 
  Country: None (occurrence: None)
  Receive Date: 20061116
  Receipt Date: 20061107
  Transmission Date: 20070319
  Serious: Yes (Hospitalization)
  Sender: FDA-Public Use
  Company Number: CA-GLAXOSMITHKLINE-B0446335A

PATIENT
  Age: 31 Year
  Sex: Female

DRUGS (16)
  1. PAROXETINE HCL [Suspect]
     Route: 065
  2. METOCLOPRAMIDE HYDROCHLORIDE [Suspect]
     Indication: PROPHYLAXIS
     Dosage: 10MG UNKNOWN
     Route: 042
  3. SUCCINYLCHOLINE [Suspect]
     Indication: INTUBATION
     Dosage: 100MG UNKNOWN
     Route: 042
  4. DIAZEPAM [Suspect]
     Indication: CONVULSION
     Dosage: 10MG UNKNOWN
     Route: 065
  5. LORAZEPAM [Suspect]
     Route: 065
  6. SODIUM CITRATE [Suspect]
     Indication: PROPHYLAXIS
     Dosage: 30ML UNKNOWN
     Route: 048
  7. THIOPENTAL SODIUM [Suspect]
     Indication: INTUBATION
     Route: 042
  8. ELECTROCONVULSIVE THERAPY [Suspect]
     Indication: BIPOLAR DISORDER
  9. MIDAZOLAM [Suspect]
     Indication: CONVULSION
     Dosage: 3MG UNKNOWN
     Route: 065
  10. PROPOFOL [Suspect]
     Indication: CONVULSION
     Route: 065
  11. DIPHENYLHYDANTOIN [Suspect]
     Indication: CONVULSION
     Dosage: 1G UNKNOWN
     Route: 065
  12. CALCIUM CHLORIDE [Suspect]
     Dosage: 1G UNKNOWN
     Route: 065
  13. MAGNESIUM SULFATE [Suspect]
     Dosage: 2G SEE DOSAGE TEXT
     Route: 065
  14. DEXTROSE 50% [Suspect]
     Dosage: 50ML UNKNOWN
     Route: 042
  15. PHENYLEPHRINE [Suspect]
     Indication: HYPOTENSION
     Route: 065
  16. DOPAMINE HCL IN 5% DEXTROSE [Suspect]
     Indication: HYPOTENSION
     Route: 065

REACTIONS (13)
  - CLONUS [None]
  - CONVULSION [None]
  - DIABETES INSIPIDUS [None]
  - DRUG EXPOSURE BEFORE PREGNANCY [None]
  - DRUG EXPOSURE DURING PREGNANCY [None]
  - ELECTROENCEPHALOGRAM ABNORMAL [None]
  - ENCEPHALOPATHY [None]
  - HYPOTENSION [None]
  - INTRA-UTERINE DEATH [None]
  - MATERNAL CONDITION AFFECTING FOETUS [None]
  - RENAL IMPAIRMENT [None]
  - STATUS EPILEPTICUS [None]
  - VENTRICULAR DYSFUNCTION [None]
